FAERS Safety Report 6714239-3 (Version None)
Quarter: 2010Q2

REPORT INFORMATION
  Report Type: 
  Country: None (occurrence: None)
  Receive Date: 20100506
  Receipt Date: 20090416
  Transmission Date: 20101027
  Serious: No
  Sender: FDA-Public Use
  Company Number: US-BAUSCH-2009BL000711

PATIENT
  Age: 32 Year
  Sex: Female

DRUGS (6)
  1. LOTEMAX [Suspect]
     Indication: GIANT PAPILLARY CONJUNCTIVITIS
     Route: 047
  2. LOTEMAX [Suspect]
     Indication: BLEPHARITIS
     Route: 047
  3. LOTEMAX [Suspect]
     Indication: CONJUNCTIVITIS INFECTIVE
     Route: 047
  4. EFFEXOR XR [Concomitant]
     Indication: DEPRESSION
     Route: 048
  5. BUSPAR /AUS/ [Concomitant]
     Indication: DEPRESSION
     Route: 048
  6. LAMICTAL [Concomitant]
     Indication: DEPRESSION
     Route: 048

REACTIONS (1)
  - DRUG INEFFECTIVE [None]
